FAERS Safety Report 4942852-2 (Version None)
Quarter: 2006Q1

REPORT INFORMATION
  Report Type: 
  Country: None (occurrence: None)
  Receive Date: 20060309
  Receipt Date: 20060227
  Transmission Date: 20060701
  Serious: Yes (Other)
  Sender: FDA-Public Use
  Company Number: 2006030240

PATIENT
  Sex: Female

DRUGS (1)
  1. MINOXIDIL [Suspect]
     Dosage: TOPICAL
     Route: 061

REACTIONS (3)
  - CARDIAC FIBRILLATION [None]
  - DIZZINESS [None]
  - HYPOTENSION [None]
